FAERS Safety Report 19358564 (Version 1)
Quarter: 2021Q2

REPORT INFORMATION
  Report Type: Spontaneous
  Country: US (occurrence: US)
  Receive Date: 20210601
  Receipt Date: 20210601
  Transmission Date: 20210717
  Serious: No
  Sender: FDA-Public Use
  Company Number: US-BAYER-2021-148757

PATIENT
  Age: 63 Year
  Sex: Female

DRUGS (2)
  1. MIRALAX [Suspect]
     Active Substance: POLYETHYLENE GLYCOL 3350
     Indication: GASTROINTESTINAL DISORDER
     Dosage: 1 DF, QD
     Route: 048
     Dates: start: 202105, end: 202105
  2. MIRALAX [Suspect]
     Active Substance: POLYETHYLENE GLYCOL 3350
     Indication: GASTROINTESTINAL DISORDER
     Dosage: 1 DF EVERY MONDAY, WEDNESDAY, FRIDAY, AND SOMETIMES ONE WEEKEND
     Route: 048
     Dates: start: 202105, end: 202105

REACTIONS (3)
  - Diarrhoea [Unknown]
  - Therapeutic product effect decreased [Unknown]
  - Faeces hard [Unknown]

NARRATIVE: CASE EVENT DATE: 202105
